FAERS Safety Report 12708575 (Version 1)
Quarter: 2016Q3

REPORT INFORMATION
  Report Type: Spontaneous
  Country: US (occurrence: US)
  Receive Date: 20160901
  Receipt Date: 20160901
  Transmission Date: 20161109
  Serious: Yes (Other)
  Sender: FDA-Public Use
  Company Number: US-TAKEDA-2016TUS015243

PATIENT
  Age: 53 Year
  Sex: Female
  Weight: 43.99 kg

DRUGS (4)
  1. OXYCODONE [Concomitant]
     Active Substance: OXYCODONE
     Dosage: 10 MG, UNK
  2. XANAX [Concomitant]
     Active Substance: ALPRAZOLAM
     Dosage: UNK
  3. ENTYVIO [Suspect]
     Active Substance: VEDOLIZUMAB
     Indication: CROHN^S DISEASE
     Dosage: 300 MG, UNK
     Route: 042
     Dates: start: 20160802, end: 20160802
  4. FENTANYL. [Concomitant]
     Active Substance: FENTANYL
     Dosage: UNK

REACTIONS (7)
  - Amnesia [Unknown]
  - Speech disorder [Unknown]
  - Back disorder [Unknown]
  - Oral candidiasis [Unknown]
  - Swollen tongue [Unknown]
  - Confusional state [Unknown]
  - Headache [Unknown]

NARRATIVE: CASE EVENT DATE: 20160803
